FAERS Safety Report 21762906 (Version 1)
Quarter: 2022Q4

REPORT INFORMATION
  Report Type: Report from Study
  Country: US (occurrence: US)
  Receive Date: 20221221
  Receipt Date: 20221221
  Transmission Date: 20230113
  Serious: No
  Sender: FDA-Public Use
  Company Number: US-ABBVIE-4245381

PATIENT
  Sex: Male

DRUGS (1)
  1. IMBRUVICA [Suspect]
     Active Substance: IBRUTINIB
     Indication: Chronic lymphocytic leukaemia
     Dosage: ONSET DATE OF 2022 FOR ALL THE EVENTS WAS NOT CAPTURED DUE TO PARTIAL DATE
     Route: 048
     Dates: start: 202205

REACTIONS (3)
  - Poor quality sleep [Unknown]
  - Herpes zoster [Recovering/Resolving]
  - Asthenia [Unknown]
